FAERS Safety Report 9263646 (Version 1)
Quarter: 2013Q2

REPORT INFORMATION
  Report Type: Spontaneous
  Country: US (occurrence: US)
  Receive Date: 20130430
  Receipt Date: 20130430
  Transmission Date: 20140414
  Serious: Yes (Death)
  Sender: FDA-Public Use
  Company Number: US-COVIDIEN/TYCO HEALTHCARE/MALLINCKRODT-T201301104

PATIENT
  Age: 60 Year
  Sex: Female

DRUGS (6)
  1. METHYLIN [Suspect]
     Indication: NARCOLEPSY
     Dosage: 5 MG, TID
     Route: 048
  2. DIOVAN HCT [Concomitant]
     Dosage: UNK
  3. SOMA [Concomitant]
     Dosage: 350 MG
  4. TRAMADOL [Concomitant]
     Dosage: 37.5/325 MG, PRN
  5. ANTIBIOTIC                         /00011701/ [Concomitant]
     Indication: NASOPHARYNGITIS
     Dosage: UNK
     Dates: start: 201302
  6. EAR DROPS [Concomitant]
     Indication: NASOPHARYNGITIS
     Dosage: UNK
     Dates: start: 201302

REACTIONS (2)
  - Disturbance in attention [Not Recovered/Not Resolved]
  - Drug effect decreased [Not Recovered/Not Resolved]
